FAERS Safety Report 13689009 (Version 1)
Quarter: 2017Q2

REPORT INFORMATION
  Report Type: Spontaneous
  Country: US (occurrence: US)
  Receive Date: 20170624
  Receipt Date: 20170624
  Transmission Date: 20170830
  Serious: Yes (Disabling)
  Sender: FDA-Public Use
  Company Number: None

PATIENT
  Age: 60 Year
  Sex: Female
  Weight: 63 kg

DRUGS (3)
  1. ATIVAN [Suspect]
     Active Substance: LORAZEPAM
     Indication: BEREAVEMENT
     Dosage: ?          OTHER STRENGTH:MG;QUANTITY:100 TABLET(S);?
     Route: 048
     Dates: start: 20100510, end: 20140310
  2. METOPROLOL. [Concomitant]
     Active Substance: METOPROLOL
  3. ATIVAN [Suspect]
     Active Substance: LORAZEPAM
     Indication: ANXIETY
     Dosage: ?          OTHER STRENGTH:MG;QUANTITY:100 TABLET(S);?
     Route: 048
     Dates: start: 20100510, end: 20140310

REACTIONS (7)
  - Hallucination [None]
  - Insomnia [None]
  - Withdrawal syndrome [None]
  - Panic reaction [None]
  - Drug monitoring procedure incorrectly performed [None]
  - Feeding disorder [None]
  - Loss of personal independence in daily activities [None]

NARRATIVE: CASE EVENT DATE: 20100810
